FAERS Safety Report 7230071-9 (Version None)
Quarter: 2011Q1

REPORT INFORMATION
  Report Type: 
  Country: None (occurrence: None)
  Receive Date: 20110118
  Receipt Date: 20110106
  Transmission Date: 20110831
  Serious: No
  Sender: FDA-Public Use
  Company Number: US-BIOGENIDEC-2010BI028611

PATIENT
  Age: 54 Year
  Sex: Female

DRUGS (1)
  1. TYSABRI [Suspect]
     Indication: MULTIPLE SCLEROSIS
     Route: 042
     Dates: start: 20100512

REACTIONS (7)
  - PARAESTHESIA [None]
  - SENSORY DISTURBANCE [None]
  - DRUG EFFECT DECREASED [None]
  - GENERAL SYMPTOM [None]
  - HYPOAESTHESIA [None]
  - URINARY TRACT INFECTION [None]
  - MUSCULOSKELETAL STIFFNESS [None]
